FAERS Safety Report 19037590 (Version 1)
Quarter: 2021Q1

REPORT INFORMATION
  Report Type: Spontaneous
  Country: US (occurrence: US)
  Receive Date: 20210322
  Receipt Date: 20210322
  Transmission Date: 20210420
  Serious: No
  Sender: FDA-Public Use
  Company Number: US-BAYER-2021-108977

PATIENT
  Sex: Female

DRUGS (1)
  1. MIRENA [Suspect]
     Active Substance: LEVONORGESTREL
     Dosage: 20?G PER DAY, CONTINUOUSLY
     Route: 015
     Dates: start: 202010

REACTIONS (7)
  - Abdominal distension [None]
  - Pelvic pain [None]
  - Vaginal discharge [None]
  - Alopecia [None]
  - Acne [None]
  - Weight increased [None]
  - Fluid retention [None]

NARRATIVE: CASE EVENT DATE: 202010
